FAERS Safety Report 6854059-2 (Version None)
Quarter: 2010Q3

REPORT INFORMATION
  Report Type: 
  Country: None (occurrence: None)
  Receive Date: 20100717
  Receipt Date: 20080207
  Transmission Date: 20110219
  Serious: No
  Sender: FDA-Public Use
  Company Number: US-PFIZER INC-2007106162

PATIENT
  Sex: Female
  Weight: 100.2 kg

DRUGS (13)
  1. CHANTIX [Suspect]
     Indication: SMOKING CESSATION THERAPY
     Route: 048
     Dates: start: 20071110
  2. PROZAC [Concomitant]
     Indication: DEPRESSION
  3. WELLBUTRIN [Concomitant]
     Indication: DEPRESSION
  4. METFORMIN HCL [Concomitant]
     Indication: DIABETES MELLITUS
  5. LISINOPRIL [Concomitant]
  6. CALCIUM [Concomitant]
  7. VITAMIN D [Concomitant]
  8. VITAMIN C [Concomitant]
  9. LIPITOR [Concomitant]
     Indication: BLOOD CHOLESTEROL INCREASED
  10. ALBUTEROL [Concomitant]
  11. SPIRIVA [Concomitant]
  12. ADVAIR DISKUS 100/50 [Concomitant]
  13. IBUPROFEN [Concomitant]

REACTIONS (4)
  - ANXIETY [None]
  - NAUSEA [None]
  - OROPHARYNGEAL BLISTERING [None]
  - STOMATITIS [None]
